FAERS Safety Report 7990658-2 (Version None)
Quarter: 2011Q4

REPORT INFORMATION
  Report Type: 
  Country: None (occurrence: None)
  Receive Date: 20111219
  Receipt Date: 20111114
  Transmission Date: 20120403
  Serious: Yes (Death, Hospitalization, Other)
  Sender: FDA-Public Use
  Company Number: JP-SHIRE-ALL1-2011-04980

PATIENT
  Sex: Male
  Weight: 24 kg

DRUGS (4)
  1. CARBOCISTEINE [Concomitant]
     Indication: MUCOPOLYSACCHARIDOSIS II
     Dosage: 270 MG, 3X/DAY:TID
     Route: 048
     Dates: start: 20020301
  2. VALPROATE SODIUM [Concomitant]
     Indication: MUCOPOLYSACCHARIDOSIS II
     Dosage: 122 MG, 3X/DAY:TID
     Route: 048
     Dates: start: 20020301
  3. FUROSEMIDE [Concomitant]
     Indication: MUCOPOLYSACCHARIDOSIS II
     Dosage: 15 MG, 3X/DAY:TID
     Route: 048
     Dates: start: 20020301
  4. IDURSULFASE [Suspect]
     Indication: MUCOPOLYSACCHARIDOSIS II
     Dosage: 6 MG, UNKNOWN
     Route: 041
     Dates: start: 20071205, end: 20111109

REACTIONS (3)
  - PNEUMONIA [None]
  - PYREXIA [None]
  - DISEASE PROGRESSION [None]
